FAERS Safety Report 10038864 (Version 1)
Quarter: 2014Q1

REPORT INFORMATION
  Report Type: Report from Study
  Country: FR (occurrence: FR)
  Receive Date: 20140326
  Receipt Date: 20140326
  Transmission Date: 20141002
  Serious: Yes (Other)
  Sender: FDA-Public Use
  Company Number: FR-VERTEX PHARMACEUTICALS INC-2014-001558

PATIENT
  Age: 65 Year
  Sex: Female

DRUGS (16)
  1. VX-950 (TELAPREVIR) [Suspect]
     Indication: CHRONIC HEPATITIS C
     Dosage: 750 MG, TID
     Route: 048
     Dates: start: 20131202, end: 20140117
  2. Z-PEGYLATED INTERFERON-2A [Suspect]
     Indication: CHRONIC HEPATITIS C
     Dosage: 180 ?G, QW
     Route: 058
     Dates: start: 20131202, end: 20131217
  3. Z-RIBAVIRIN [Suspect]
     Indication: CHRONIC HEPATITIS C
     Dosage: 400 MG, BID
     Route: 048
     Dates: start: 20131227, end: 20140117
  4. Z-RIBAVIRIN [Suspect]
     Dosage: 1000 MG, QD
     Route: 048
     Dates: start: 20131202, end: 20131226
  5. PEGINTERFERON LAMBDA-1A [Suspect]
     Indication: CHRONIC HEPATITIS C
     Dosage: 180 ?G, QW
     Route: 058
     Dates: start: 20131202, end: 20140117
  6. IXPRIM [Concomitant]
     Dosage: DOSAGE FORM: UNKNOWN
     Route: 065
  7. CALCIFEDIOL [Concomitant]
     Dosage: DOSAGE FORM: UNKNOWN
     Route: 065
  8. DICLOFENAC SODIUM [Concomitant]
     Dosage: DOSAGE FORM: UNKNOWN
     Route: 065
  9. INNOVAR [Concomitant]
     Dosage: DOSAGE FORM: UNKNOWN
     Route: 065
  10. ESOMEPRAZOLE [Concomitant]
     Dosage: DOSAGE FORM: UNKNOWN
     Route: 065
  11. ESTRADIOL [Concomitant]
     Dosage: DOSAGE FORM: UNKNOWN
     Route: 065
  12. PROGESTERONE [Concomitant]
     Dosage: DOSAGE FORM: UNKNOWN
     Route: 065
  13. VALSARTAN [Concomitant]
     Indication: HYPERTENSION
     Dosage: DOSAGE FORM: UNKNOWN
     Route: 065
  14. DOMPERIDONE [Concomitant]
     Dosage: DOSAGE FORM: UNKNOWN
     Route: 065
  15. BECLOMETASONE DIPROPIONATE [Concomitant]
     Dosage: DOSAGE FORM: UNKNOWN
     Route: 065
  16. FORMOTEROL FUMARATE [Concomitant]
     Dosage: DOSAGE FORM: UNKNOWN
     Route: 065

REACTIONS (3)
  - Lipase increased [Not Recovered/Not Resolved]
  - Anaemia [Not Recovered/Not Resolved]
  - Blood creatinine increased [Not Recovered/Not Resolved]
